FAERS Safety Report 6164697-0 (Version None)
Quarter: 2009Q2

REPORT INFORMATION
  Report Type: 
  Country: None (occurrence: None)
  Receive Date: 20090423
  Receipt Date: 20090414
  Transmission Date: 20091009
  Serious: Yes (Hospitalization)
  Sender: FDA-Public Use
  Company Number: DE-ASTRAZENECA-2009PK01063

PATIENT
  Age: 54 Year
  Sex: Female

DRUGS (6)
  1. SEROQUEL [Suspect]
     Indication: SCHIZOPHRENIA
     Route: 048
     Dates: start: 20070426, end: 20070507
  2. SEROQUEL [Suspect]
     Route: 048
     Dates: start: 20070510, end: 20070513
  3. SOLVEX [Concomitant]
     Dates: start: 20070421, end: 20070521
  4. BISOPROLOL FUMARATE [Concomitant]
     Dates: start: 20010101
  5. ESIDRIX [Concomitant]
  6. PANTOZOL [Concomitant]
     Dates: start: 20060101

REACTIONS (1)
  - DEEP VEIN THROMBOSIS [None]
